FAERS Safety Report 4786819-6 (Version None)
Quarter: 2005Q3

REPORT INFORMATION
  Report Type: 
  Country: None (occurrence: None)
  Receive Date: 20050930
  Receipt Date: 20050920
  Transmission Date: 20060218
  Serious: Yes (Hospitalization)
  Sender: FDA-Public Use
  Company Number: CHNY2005JP01424

PATIENT
  Age: 70 Year
  Sex: Female

DRUGS (2)
  1. NICOTINELL TTS (NCH) (NICOTINE) TRANS-THERAPEUTIC -SYSTEM [Suspect]
     Indication: SMOKING CESSATION THERAPY
     Dosage: SEE IMAGE
     Route: 062
     Dates: start: 20050531, end: 20050626
  2. NICOTINELL TTS (NCH) (NICOTINE) TRANS-THERAPEUTIC -SYSTEM [Suspect]
     Indication: SMOKING CESSATION THERAPY
     Dosage: SEE IMAGE
     Route: 062
     Dates: start: 20050627, end: 20050706

REACTIONS (3)
  - APPLICATION SITE DERMATITIS [None]
  - APPLICATION SITE PRURITUS [None]
  - ECZEMA [None]
